FAERS Safety Report 17929102 (Version 1)
Quarter: 2020Q2

REPORT INFORMATION
  Report Type: Spontaneous
  Country: US (occurrence: US)
  Receive Date: 20200622
  Receipt Date: 20200622
  Transmission Date: 20200714
  Serious: Yes (Hospitalization)
  Sender: FDA-Public Use
  Company Number: None

PATIENT
  Age: 71 Year
  Sex: Female

DRUGS (30)
  1. ENBREL [Suspect]
     Active Substance: ETANERCEPT
     Indication: RHEUMATOID ARTHRITIS
     Dosage: ?          OTHER DOSE:1 SYR;?
     Route: 058
     Dates: start: 20151201
  2. CALCIUM MAGNESIU [Concomitant]
  3. DULOXETINE. [Concomitant]
     Active Substance: DULOXETINE
  4. METOPROL TAR [Concomitant]
  5. OMPERAZOLE [Concomitant]
     Active Substance: OMEPRAZOLE
  6. FUROSEMIDE. [Concomitant]
     Active Substance: FUROSEMIDE
  7. PREDNISONE. [Suspect]
     Active Substance: PREDNISONE
  8. STOOL SOFTNR [Concomitant]
  9. ACYCLOVIR. [Concomitant]
     Active Substance: ACYCLOVIR
  10. KONSYL [Concomitant]
     Active Substance: PSYLLIUM HUSK
  11. K-TAB [Concomitant]
     Active Substance: POTASSIUM CHLORIDE
  12. SAVELLA [Concomitant]
     Active Substance: MILNACIPRAN HYDROCHLORIDE
  13. ELIQUIS [Concomitant]
     Active Substance: APIXABAN
  14. VITAMIN D3 [Concomitant]
     Active Substance: CHOLECALCIFEROL
  15. XARELTO STAR [Concomitant]
  16. COLCHICINE. [Concomitant]
     Active Substance: COLCHICINE
  17. LOSARTAN POT [Concomitant]
     Active Substance: LOSARTAN POTASSIUM
  18. BISOPROL FUM [Concomitant]
     Active Substance: BISOPROLOL FUMARATE
  19. FOLIC ACID. [Concomitant]
     Active Substance: FOLIC ACID
  20. PREDNISONE. [Concomitant]
     Active Substance: PREDNISONE
  21. ATORVASTATIN [Concomitant]
     Active Substance: ATORVASTATIN
  22. CRUSH VIT C [Concomitant]
  23. LISINOPRIL. [Concomitant]
     Active Substance: LISINOPRIL
  24. PANTOPRAZOLE [Concomitant]
     Active Substance: PANTOPRAZOLE
  25. PREGABALIN. [Concomitant]
     Active Substance: PREGABALIN
  26. CARTIA XT [Concomitant]
     Active Substance: DILTIAZEM HYDROCHLORIDE
  27. DILTIAZEM. [Concomitant]
     Active Substance: DILTIAZEM
  28. METHOTREXATE. [Concomitant]
     Active Substance: METHOTREXATE
  29. THERAPEUTIC TAB [Concomitant]
  30. WARFARIN [Concomitant]
     Active Substance: WARFARIN

REACTIONS (4)
  - Dyspnoea [None]
  - Pericardial effusion [None]
  - Pleural effusion [None]
  - Therapy interrupted [None]

NARRATIVE: CASE EVENT DATE: 20200622
